FAERS Safety Report 10176060 (Version 1)
Quarter: 2014Q2

REPORT INFORMATION
  Report Type: Spontaneous
  Country: US (occurrence: None)
  Receive Date: 20140425
  Receipt Date: 20140425
  Transmission Date: 20141212
  Serious: No
  Sender: FDA-Public Use
  Company Number: AP356-00468-SPO-US

PATIENT
  Age: 82 Year
  Sex: Female
  Weight: 63.5 kg

DRUGS (4)
  1. BELVIQ (LORCASERIN HYDROCHLORIDE) [Suspect]
     Indication: WEIGHT DECREASED
     Dosage: 5 MG, 1 IN 1 D, ORAL
     Route: 048
     Dates: start: 20140205
  2. PRIMIDONE (PRIMIDONE) [Concomitant]
  3. CLONAZEPAM (CLONAZEPAM) (CLONAZEPAM) [Concomitant]
  4. ARTANE (TRIHEXYPHENIDYL HYDROCHLORIDE) [Concomitant]

REACTIONS (3)
  - Dry mouth [None]
  - Decreased appetite [None]
  - Drug ineffective [None]
